FAERS Safety Report 7666001 (Version 2)
Quarter: 2013Q4

REPORT INFORMATION
  Report Type: Spontaneous
  Country: US (occurrence: US)
  Receive Date: 20101112
  Receipt Date: 20131223
  Transmission Date: 20140711
  Serious: Yes (Other)
  Sender: FDA-Public Use
  Company Number: US-BAYER-201040547NA

PATIENT
  Age: 22 Year
  Sex: Female

DRUGS (5)
  1. YAZ [Suspect]
     Indication: PRODUCT USED FOR UNKNOWN INDICATION
     Dosage: UNK UNK, QD
     Route: 048
     Dates: start: 200407, end: 20091215
  2. YASMIN [Suspect]
     Indication: PRODUCT USED FOR UNKNOWN INDICATION
     Route: 048
     Dates: start: 200407, end: 20091215
  3. OCELLA [Suspect]
     Indication: PRODUCT USED FOR UNKNOWN INDICATION
     Route: 048
     Dates: start: 200407, end: 20091215
  4. ULTRAM [Concomitant]
     Dosage: UNK
     Dates: start: 20091224
  5. DARVOCET [Concomitant]
     Dosage: UNK
     Dates: start: 20091224

REACTIONS (2)
  - Cholecystectomy [Unknown]
  - Biliary dyskinesia [None]
